FAERS Safety Report 17979429 (Version 2)
Quarter: 2020Q3

REPORT INFORMATION
  Report Type: Spontaneous
  Country: BE (occurrence: BE)
  Receive Date: 20200703
  Receipt Date: 20200713
  Transmission Date: 20201103
  Serious: Yes (Other)
  Sender: FDA-Public Use
  Company Number: BE-SAMSUNG BIOEPIS-SB-2020-21551

PATIENT
  Age: 52 Year
  Sex: Female
  Weight: 108.8 kg

DRUGS (5)
  1. IMRALDI [Suspect]
     Active Substance: ADALIMUMAB
     Indication: CROHN^S DISEASE
     Route: 058
     Dates: start: 20191004
  2. ASAFLOW [Concomitant]
     Active Substance: ASPIRIN
     Indication: THROMBOCYTOSIS
     Dosage: UNKNOWN
     Route: 065
     Dates: start: 2016
  3. HYDREA [Concomitant]
     Active Substance: HYDROXYUREA
     Indication: THROMBOCYTOSIS
     Dosage: ALTERNATELY
     Route: 065
     Dates: start: 201805, end: 20200212
  4. EMCONCOR MITIS [Concomitant]
     Indication: HYPERTENSION
     Dosage: UNKNOWN
     Route: 065
     Dates: start: 2016
  5. HYDREA [Concomitant]
     Active Substance: HYDROXYUREA
     Dosage: ALTERNATELY
     Route: 065
     Dates: start: 201805, end: 20200212

REACTIONS (3)
  - Leukocytosis [Recovering/Resolving]
  - Thrombocytosis [Recovering/Resolving]
  - Chronic myeloid leukaemia [Not Recovered/Not Resolved]

NARRATIVE: CASE EVENT DATE: 201910
